FAERS Safety Report 9306181 (Version 3)
Quarter: 2013Q4

REPORT INFORMATION
  Report Type: Spontaneous
  Country: US (occurrence: US)
  Receive Date: 20130523
  Receipt Date: 20131223
  Transmission Date: 20140711
  Serious: Yes (Death)
  Sender: FDA-Public Use
  Company Number: US-GLAXOSMITHKLINE-A1024317A

PATIENT
  Age: 72 Year
  Sex: Male

DRUGS (1)
  1. ARIXTRA [Suspect]
     Indication: ANTICOAGULANT THERAPY
     Dosage: 7.5MG UNKNOWN
     Dates: start: 20120829

REACTIONS (1)
  - Death [Fatal]
